FAERS Safety Report 8448117-9 (Version None)
Quarter: 2012Q2

REPORT INFORMATION
  Report Type: 
  Country: None (occurrence: None)
  Receive Date: 20120619
  Receipt Date: 20120615
  Transmission Date: 20120825
  Serious: Yes (Life-Threatening, Hospitalization, Other)
  Sender: FDA-Public Use
  Company Number: JP-PFIZER INC-2012133035

PATIENT
  Age: 40 Year
  Sex: Male
  Weight: 73.2 kg

DRUGS (10)
  1. LANSOPRAZOLE [Concomitant]
     Dosage: 15 MG, 1X/DAY
     Route: 048
     Dates: start: 20120511, end: 20120524
  2. IRRIBOW [Concomitant]
     Indication: IRRITABLE BOWEL SYNDROME
     Dosage: 5 UG, 1X/DAY
     Route: 048
     Dates: start: 20120512, end: 20120518
  3. GASTROM [Concomitant]
     Indication: GASTRITIS
     Dosage: 1.0 G, 3X/DAY
     Route: 048
     Dates: start: 20120528
  4. FAMOTIDINE [Concomitant]
     Indication: OESOPHAGITIS
     Dosage: 20 MG, 2X/DAY
     Route: 048
     Dates: start: 20120528
  5. TSUKUSHI AM [Concomitant]
     Indication: GASTRITIS
     Dosage: 1.3 G, 3X/DAY
     Route: 048
     Dates: start: 20120528
  6. LANSOPRAZOLE [Concomitant]
     Indication: OESOPHAGITIS
     Dosage: 15 MG, 1X/DAY
     Route: 048
     Dates: start: 20120416, end: 20120422
  7. FAMOTIDINE [Concomitant]
     Indication: GASTRITIS
  8. VARENICLINE TARTRATE [Suspect]
     Indication: NICOTINE DEPENDENCE
     Dosage: 0.5 MG, 1X/DAY
     Route: 048
     Dates: start: 20120416, end: 20120418
  9. VARENICLINE TARTRATE [Suspect]
     Dosage: 0.5 MG, 2X/DAY
     Route: 048
     Dates: start: 20120419, end: 20120422
  10. VARENICLINE TARTRATE [Suspect]
     Dosage: 1 MG, 2X/DAY
     Route: 048
     Dates: start: 20120423, end: 20120531

REACTIONS (11)
  - DECREASED APPETITE [None]
  - BLOOD LACTATE DEHYDROGENASE INCREASED [None]
  - HEPATIC FUNCTION ABNORMAL [None]
  - ALANINE AMINOTRANSFERASE INCREASED [None]
  - GAMMA-GLUTAMYLTRANSFERASE INCREASED [None]
  - NAUSEA [None]
  - JAUNDICE [None]
  - ABDOMINAL PAIN [None]
  - ASPARTATE AMINOTRANSFERASE INCREASED [None]
  - BLOOD BILIRUBIN INCREASED [None]
  - VOMITING [None]
